FAERS Safety Report 7733468-3 (Version None)
Quarter: 2011Q3

REPORT INFORMATION
  Report Type: 
  Country: None (occurrence: None)
  Receive Date: 20110907
  Receipt Date: 20110829
  Transmission Date: 20111222
  Serious: Yes (Hospitalization, Other)
  Sender: FDA-Public Use
  Company Number: US-BAYER-2011-065373

PATIENT
  Age: 23 Year
  Sex: Female
  Weight: 74.376 kg

DRUGS (1)
  1. MIRENA [Suspect]
     Indication: CONTRACEPTION
     Dosage: 20 MCG/24HR, CONT
     Route: 015
     Dates: start: 20110623, end: 20110711

REACTIONS (3)
  - DEVICE DISLOCATION [None]
  - PELVIC PAIN [None]
  - DISCOMFORT [None]
